FAERS Safety Report 19801529 (Version 1)
Quarter: 2021Q3

REPORT INFORMATION
  Report Type: Spontaneous
  Country: US (occurrence: US)
  Receive Date: 20210907
  Receipt Date: 20210907
  Transmission Date: 20211014
  Serious: Yes (Hospitalization)
  Sender: FDA-Public Use
  Company Number: US-INCYTE CORPORATION-2021IN007941

PATIENT

DRUGS (1)
  1. JAKAFI [Suspect]
     Active Substance: RUXOLITINIB
     Indication: MYELODYSPLASTIC SYNDROME
     Dosage: 1 TAB QAM MWF AND 1 TAB QAM, 1 TAB QPM ON ALL OTHER DAYS
     Route: 048
     Dates: start: 201903

REACTIONS (2)
  - Oropharyngeal scar [Unknown]
  - Off label use [Unknown]

NARRATIVE: CASE EVENT DATE: 201903
